FAERS Safety Report 8818172 (Version 1)
Quarter: 2012Q4

REPORT INFORMATION
  Report Type: 
  Country: US (occurrence: US)
  Receive Date: 20121001
  Receipt Date: 20121001
  Transmission Date: 20130627
  Serious: Yes (Other)
  Sender: FDA-Public Use
  Company Number: US-ASTRAZENECA-2012SE73593

PATIENT
  Age: 67 Year
  Sex: Female
  Weight: 66.7 kg

DRUGS (13)
  1. ARIMIDEX [Suspect]
     Indication: BREAST CANCER FEMALE
     Route: 048
     Dates: start: 20080407
  2. ARIMIDEX [Suspect]
     Indication: BREAST CANCER FEMALE
     Route: 048
     Dates: start: 20120103
  3. FASLODEX [Suspect]
     Indication: BREAST CANCER FEMALE
     Dosage: 500 MG Z-TRACK IM ON DAY 1, THEN DAY 15, THEN DAY 29, THEN EVERY MONTH
     Route: 030
     Dates: start: 20120229
  4. XGEVA [Suspect]
     Dosage: 120 MG ON DAY 1, THEN DAY 15, THEN DAY 29, THEN EVERY MONTH
     Route: 058
  5. DIOVAN [Concomitant]
  6. METFORMIN [Concomitant]
  7. CYMBALTA [Concomitant]
  8. GABAPENTIN [Concomitant]
  9. LORAZEPAM [Concomitant]
  10. LIPITOR [Concomitant]
  11. TRAZADONE [Concomitant]
  12. CALCIUM WITH D2 [Concomitant]
  13. IBUPROFEN [Concomitant]
     Dosage: AS REQUIRED

REACTIONS (17)
  - Tumour marker increased [Unknown]
  - Breast cancer metastatic [Unknown]
  - Cataract [Unknown]
  - Metastases to bone [Unknown]
  - Glucose tolerance impaired [Unknown]
  - Hypertension [Unknown]
  - Hyperlipidaemia [Unknown]
  - Radicular pain [Unknown]
  - Anxiety [Unknown]
  - Depression [Unknown]
  - Musculoskeletal pain [Unknown]
  - Pelvic pain [Unknown]
  - Restless legs syndrome [Unknown]
  - Swelling [Unknown]
  - Constipation [Unknown]
  - Cancer pain [Unknown]
  - Arthralgia [Unknown]
